FAERS Safety Report 17863906 (Version 3)
Quarter: 2020Q2

REPORT INFORMATION
  Report Type: Spontaneous
  Country: IT (occurrence: IT)
  Receive Date: 20200605
  Receipt Date: 20200618
  Transmission Date: 20200714
  Serious: Yes (Hospitalization, Other)
  Sender: FDA-Public Use
  Company Number: IT-VELOXIS PHARMACEUTICALS-2020VELIT-000531

PATIENT
  Age: 67 Year
  Sex: Male

DRUGS (3)
  1. ENVARSUS XR [Suspect]
     Active Substance: TACROLIMUS
     Indication: IMMUNOSUPPRESSANT DRUG THERAPY
  2. LAMIVUDINE. [Concomitant]
     Active Substance: LAMIVUDINE
     Indication: PRODUCT USED FOR UNKNOWN INDICATION
     Dosage: 100 MILLIGRAM, QD
  3. RANITIDINE. [Concomitant]
     Active Substance: RANITIDINE
     Indication: PRODUCT USED FOR UNKNOWN INDICATION

REACTIONS (14)
  - Hepatitis cholestatic [Recovering/Resolving]
  - Oliguria [Recovering/Resolving]
  - Posterior reversible encephalopathy syndrome [Recovered/Resolved]
  - Nephrotic syndrome [Recovering/Resolving]
  - Jaundice cholestatic [Recovered/Resolved]
  - Hypertension [Recovered/Resolved]
  - Graft infection [Recovering/Resolving]
  - Hepatitis C [Recovering/Resolving]
  - Cryoglobulinaemia [Recovering/Resolving]
  - Acute kidney injury [Recovering/Resolving]
  - Hepatic fibrosis [Recovering/Resolving]
  - Nephritic syndrome [Unknown]
  - Type 2 diabetes mellitus [Unknown]
  - Fluid overload [Recovering/Resolving]
